FAERS Safety Report 25848817 (Version 3)
Quarter: 2025Q4

REPORT INFORMATION
  Report Type: Report from Study
  Country: US (occurrence: US)
  Receive Date: 20250925
  Receipt Date: 20251020
  Transmission Date: 20260118
  Serious: No
  Sender: MALLINCKRODT
  Company Number: US-MALLINCKRODT-MNK202505777

PATIENT
  Age: 67 Year
  Sex: Male

DRUGS (3)
  1. CORTICOTROPIN [Suspect]
     Active Substance: CORTICOTROPIN
     Indication: Dermatomyositis
     Route: 058
     Dates: start: 20250906
  2. CORTICOTROPIN [Suspect]
     Active Substance: CORTICOTROPIN
     Indication: Dermatomyositis
  3. MYCOPHENOLIC ACID [Concomitant]
     Active Substance: MYCOPHENOLIC ACID
     Dosage: UNKNOWN

REACTIONS (4)
  - Device malfunction [Unknown]
  - Injection site mass [Unknown]
  - Injection site discharge [Unknown]
  - Injection site haemorrhage [Unknown]

NARRATIVE: CASE EVENT DATE: 20250901
